FAERS Safety Report 7340881-5 (Version None)
Quarter: 2011Q1

REPORT INFORMATION
  Report Type: 
  Country: None (occurrence: None)
  Receive Date: 20110228
  Receipt Date: 20070827
  Transmission Date: 20110831
  Serious: Yes (Other)
  Sender: FDA-Public Use
  Company Number: COL_06314_2011

PATIENT
  Sex: Female

DRUGS (1)
  1. PREVIDENT GEL RX UNSPECIFIED TOOTHPASTE [Suspect]
     Indication: DENTAL CARIES
     Dosage: (NI/NI/ORAL)
     Route: 048

REACTIONS (1)
  - BLADDER CANCER [None]
